FAERS Safety Report 6225720-8 (Version None)
Quarter: 2009Q2

REPORT INFORMATION
  Report Type: 
  Country: None (occurrence: None)
  Receive Date: 20090612
  Receipt Date: 20090430
  Transmission Date: 20091009
  Serious: No
  Sender: FDA-Public Use
  Company Number: US-ABBOTT-09P-163-0570989-00

PATIENT
  Sex: Female
  Weight: 79.904 kg

DRUGS (2)
  1. HUMIRA [Suspect]
     Indication: PSORIATIC ARTHROPATHY
     Dates: start: 20080107
  2. HUMIRA [Suspect]

REACTIONS (1)
  - URINARY TRACT INFECTION [None]
